FAERS Safety Report 4711387-4 (Version None)
Quarter: 2005Q3

REPORT INFORMATION
  Report Type: 
  Country: None (occurrence: None)
  Receive Date: 20050711
  Receipt Date: 20050701
  Transmission Date: 20060218
  Serious: Yes (Disabling)
  Sender: FDA-Public Use
  Company Number: DE-MERCK-0507DEU00049

PATIENT
  Age: 10 Year
  Sex: Female
  Weight: 28 kg

DRUGS (6)
  1. COSMEGEN [Suspect]
     Indication: MALIGNANT MESENCHYMOMA
     Route: 042
  2. IFOSFAMIDE [Suspect]
     Indication: MALIGNANT MESENCHYMOMA
     Route: 065
  3. VINCRISTINE SULFATE [Suspect]
     Indication: MALIGNANT MESENCHYMOMA
     Route: 065
  4. ETOPOSIDE [Suspect]
     Indication: MALIGNANT MESENCHYMOMA
     Route: 065
  5. CARBOPLATIN [Suspect]
     Indication: MALIGNANT MESENCHYMOMA
     Route: 065
  6. EPIRUBICIN HYDROCHLORIDE [Suspect]
     Indication: MALIGNANT MESENCHYMOMA
     Route: 065

REACTIONS (4)
  - ANOREXIA [None]
  - GROWTH RETARDATION [None]
  - HYPOTHYROIDISM [None]
  - VOMITING [None]
